FAERS Safety Report 23748905 (Version 1)
Quarter: 2024Q2

REPORT INFORMATION
  Report Type: Spontaneous
  Country: CA (occurrence: None)
  Receive Date: 20240416
  Receipt Date: 20240416
  Transmission Date: 20240716
  Serious: Yes (Other)
  Sender: FDA-Public Use
  Company Number: 2024A086034

PATIENT
  Age: 80 Year
  Sex: Male

DRUGS (4)
  1. ROSUVASTATIN [Suspect]
     Active Substance: ROSUVASTATIN
  2. FLUCONAZOLE [Suspect]
     Active Substance: FLUCONAZOLE
  3. AMOXICILLIN\CLAVULANIC ACID [Suspect]
     Active Substance: AMOXICILLIN\CLAVULANIC ACID
  4. TYGACIL [Suspect]
     Active Substance: TIGECYCLINE

REACTIONS (1)
  - Hepatotoxicity [Unknown]
